FAERS Safety Report 7492350-X (Version None)
Quarter: 2011Q2

REPORT INFORMATION
  Report Type: 
  Country: None (occurrence: None)
  Receive Date: 20110519
  Receipt Date: 20110512
  Transmission Date: 20111010
  Serious: Yes (Hospitalization)
  Sender: FDA-Public Use
  Company Number: FR-PFIZER INC-2011089725

PATIENT
  Age: 84 Year
  Sex: Female

DRUGS (13)
  1. CLARITHROMYCIN [Suspect]
     Dosage: 1 G, UNK
     Route: 048
     Dates: start: 20110223, end: 20110301
  2. DIFFU K [Concomitant]
     Dosage: 3 DF, UNK
     Route: 048
     Dates: start: 20110221, end: 20110223
  3. IRBESARTAN + HYDROCHLOROTHIAZIDE [Suspect]
     Dosage: 300MG/25MG
     Route: 048
     Dates: end: 20110223
  4. XANAX [Concomitant]
     Dosage: 1 MG, UNK
     Route: 048
     Dates: end: 20110223
  5. ATARAX [Concomitant]
     Dosage: 25 MG, UNK
     Route: 048
     Dates: end: 20110222
  6. PANTOPRAZOLE [Suspect]
     Indication: HELICOBACTER INFECTION
     Dosage: 40 MG, 2X/DAY
     Route: 048
     Dates: start: 20110217, end: 20110228
  7. OFLOXACIN [Concomitant]
     Indication: URINARY TRACT INFECTION
     Dosage: 400 MG, UNK
     Route: 048
     Dates: start: 20110221, end: 20110222
  8. LEVOTHYROXINE SODIUM [Concomitant]
     Dosage: 25 MG, UNK
     Route: 048
  9. INNOHEP [Concomitant]
     Indication: THROMBOSIS
     Dosage: 0.6 ML, UNK
     Route: 058
     Dates: start: 20110221, end: 20110223
  10. FENOFIBRATE [Suspect]
     Dosage: 145 MG, UNK
     Route: 048
     Dates: end: 20110223
  11. AMOXICILLIN [Suspect]
     Dosage: 3 G, UNK
     Route: 048
     Dates: start: 20110222, end: 20110303
  12. CITALOPRAM HYDROBROMIDE [Concomitant]
     Dosage: 20 MG, UNK
     Route: 048
     Dates: start: 20110223
  13. FORLAX [Concomitant]
     Dosage: 2 DF, UNK
     Route: 048
     Dates: start: 20110223, end: 20110228

REACTIONS (1)
  - RENAL FAILURE ACUTE [None]
